FAERS Safety Report 17476836 (Version 1)
Quarter: 2020Q1

REPORT INFORMATION
  Report Type: Report from Study
  Country: GB (occurrence: GB)
  Receive Date: 20200228
  Receipt Date: 20200228
  Transmission Date: 20200409
  Serious: No
  Sender: FDA-Public Use
  Company Number: GB-JNJFOC-20190628635

PATIENT
  Age: 4 Decade
  Sex: Male
  Weight: 112 kg

DRUGS (5)
  1. CLONAZEPAM. [Concomitant]
     Active Substance: CLONAZEPAM
     Indication: EPILEPSY
     Route: 065
     Dates: start: 1991
  2. SETALIN [Concomitant]
  3. CAPASAL [Concomitant]
     Indication: PSORIASIS
     Route: 065
     Dates: start: 20121005
  4. STELARA [Suspect]
     Active Substance: USTEKINUMAB
     Indication: PSORIASIS
     Route: 058
     Dates: start: 201306
  5. EPILIM [Concomitant]
     Active Substance: VALPROATE SODIUM
     Indication: EPILEPSY
     Route: 065
     Dates: start: 1991

REACTIONS (1)
  - Hepatic steatosis [Unknown]
